FAERS Safety Report 7739830-7 (Version None)
Quarter: 2011Q3

REPORT INFORMATION
  Report Type: 
  Country: None (occurrence: None)
  Receive Date: 20110909
  Receipt Date: 20110830
  Transmission Date: 20111222
  Serious: Yes (Hospitalization, Other)
  Sender: FDA-Public Use
  Company Number: PHEH2011US02955

PATIENT
  Sex: Female
  Weight: 71.202 kg

DRUGS (14)
  1. GLEEVEC [Suspect]
     Indication: CHRONIC MYELOID LEUKAEMIA
     Dosage: 100 MG, BID
     Route: 048
     Dates: start: 20070216
  2. ASPIRIN [Concomitant]
  3. COLACE [Concomitant]
  4. SIMVASTATIN [Concomitant]
  5. MULTI-VITAMIN [Concomitant]
  6. NOVOLOG [Concomitant]
  7. VITAMIN D [Concomitant]
  8. GLUCAGON [Concomitant]
  9. AMBIEN [Concomitant]
     Dosage: 5 MG, UNK
     Route: 048
  10. LYRICA [Concomitant]
  11. PLAVIX [Concomitant]
  12. LEVOTHROID [Concomitant]
  13. NORVASC [Concomitant]
  14. DETROL [Concomitant]

REACTIONS (7)
  - CHRONIC OBSTRUCTIVE PULMONARY DISEASE [None]
  - RENAL FAILURE CHRONIC [None]
  - DEHYDRATION [None]
  - HYPOTHYROIDISM [None]
  - HYPOGLYCAEMIA [None]
  - HYPERTENSION [None]
  - DYSLIPIDAEMIA [None]
